FAERS Safety Report 24548038 (Version 1)
Quarter: 2024Q4

REPORT INFORMATION
  Report Type: Spontaneous
  Country: US (occurrence: US)
  Receive Date: 20241025
  Receipt Date: 20241025
  Transmission Date: 20250114
  Serious: Yes (Other)
  Sender: APOTEX
  Company Number: US-APOTEX-2024AP012745

PATIENT
  Age: 74 Year
  Sex: Female

DRUGS (6)
  1. GEMCITABINE [Suspect]
     Active Substance: GEMCITABINE
     Indication: Myxoid liposarcoma
     Dosage: UNK
     Route: 065
  2. GEMCITABINE [Suspect]
     Active Substance: GEMCITABINE
     Indication: Recurrent cancer
  3. DOXORUBICIN [Concomitant]
     Active Substance: DOXORUBICIN
     Indication: Myxoid liposarcoma
     Dosage: UNK
     Route: 065
  4. DOXORUBICIN [Concomitant]
     Active Substance: DOXORUBICIN
     Indication: Recurrent cancer
  5. OLARATUMAB [Concomitant]
     Active Substance: OLARATUMAB
     Indication: Myxoid liposarcoma
     Dosage: UNK
     Route: 065
  6. OLARATUMAB [Concomitant]
     Active Substance: OLARATUMAB
     Indication: Recurrent cancer

REACTIONS (2)
  - Acute kidney injury [Recovered/Resolved]
  - Anaemia [Recovering/Resolving]
